FAERS Safety Report 6978005-6 (Version None)
Quarter: 2010Q3

REPORT INFORMATION
  Report Type: 
  Country: None (occurrence: None)
  Receive Date: 20100913
  Receipt Date: 20100903
  Transmission Date: 20110219
  Serious: Yes (Hospitalization, Other)
  Sender: FDA-Public Use
  Company Number: JP-PFIZER INC-2010078637

PATIENT
  Age: 63 Year
  Sex: Female
  Weight: 71 kg

DRUGS (2)
  1. LIPITOR [Suspect]
     Indication: HYPERCHOLESTEROLAEMIA
     Dosage: 10 MG, 1X/DAY
     Route: 048
     Dates: start: 20100609, end: 20100609
  2. NEORAL [Interacting]
     Indication: MYASTHENIA GRAVIS
     Dosage: 100 MG, 2X/DAY
     Route: 048
     Dates: start: 20070518

REACTIONS (7)
  - BLOOD GLUCOSE ABNORMAL [None]
  - CHROMATURIA [None]
  - DRUG INTERACTION [None]
  - MUSCLE SPASMS [None]
  - MUSCULAR WEAKNESS [None]
  - MYALGIA [None]
  - RHABDOMYOLYSIS [None]
